FAERS Safety Report 7369321-7 (Version None)
Quarter: 2011Q1

REPORT INFORMATION
  Report Type: 
  Country: None (occurrence: None)
  Receive Date: 20110323
  Receipt Date: 20110315
  Transmission Date: 20110831
  Serious: Yes (Hospitalization)
  Sender: FDA-Public Use
  Company Number: B0706349A

PATIENT
  Age: 56 Year
  Sex: Female

DRUGS (1)
  1. HYCAMTIN [Suspect]
     Route: 048
     Dates: start: 20110101

REACTIONS (2)
  - ANAPHYLACTIC SHOCK [None]
  - INTERSTITIAL LUNG DISEASE [None]
